FAERS Safety Report 4332270-2 (Version None)
Quarter: 2004Q1

REPORT INFORMATION
  Report Type: 
  Country: None (occurrence: None)
  Receive Date: 20040331
  Receipt Date: 20040315
  Transmission Date: 20041129
  Serious: Yes (Other)
  Sender: FDA-Public Use
  Company Number: 2004-DE-01280GD

PATIENT
  Sex: Male

DRUGS (4)
  1. PREDNISONE [Suspect]
     Indication: ANAEMIA HAEMOLYTIC AUTOIMMUNE
     Dosage: 2 MG/KG
  2. PREDNISONE [Suspect]
     Indication: HEPATITIS
     Dosage: 2 MG/KG
  3. AZATHIOPRINE [Suspect]
     Indication: ANAEMIA HAEMOLYTIC AUTOIMMUNE
     Dosage: 1.5 MG/KG
  4. AZATHIOPRINE [Suspect]
     Indication: HEPATITIS
     Dosage: 1.5 MG/KG

REACTIONS (5)
  - GROWTH RETARDATION [None]
  - LENTICULAR OPACITIES [None]
  - OBESITY [None]
  - OSTEOPOROSIS [None]
  - THROMBOCYTOPENIA [None]
